FAERS Safety Report 18663493 (Version 1)
Quarter: 2020Q4

REPORT INFORMATION
  Report Type: Report from Study
  Country: CA (occurrence: CA)
  Receive Date: 20201224
  Receipt Date: 20201224
  Transmission Date: 20210114
  Serious: Yes (Other)
  Sender: FDA-Public Use
  Company Number: CA-TAKEDA-2020TUS059635

PATIENT
  Age: 41 Year
  Sex: Female

DRUGS (2)
  1. VEDOLIZUMAB [Suspect]
     Active Substance: VEDOLIZUMAB
     Indication: COLITIS ULCERATIVE
     Dosage: 300 MILLIGRAM
     Route: 042
     Dates: start: 20201106
  2. PENTASA [Concomitant]
     Active Substance: MESALAMINE
     Dosage: 9 MILLIGRAM, QD

REACTIONS (2)
  - Frequent bowel movements [Not Recovered/Not Resolved]
  - Rectal haemorrhage [Not Recovered/Not Resolved]
